FAERS Safety Report 21823389 (Version 2)
Quarter: 2023Q1

REPORT INFORMATION
  Report Type: Spontaneous
  Country: DE (occurrence: DE)
  Receive Date: 20230105
  Receipt Date: 20230111
  Transmission Date: 20230417
  Serious: Yes (Disabling, Other)
  Sender: FDA-Public Use
  Company Number: DE-ROCHE-3217050

PATIENT
  Age: 67 Year
  Sex: Male

DRUGS (15)
  1. DEXAMETHASONE [Suspect]
     Active Substance: DEXAMETHASONE
     Indication: Diffuse large B-cell lymphoma
     Dosage: UNK (2ND LINE, R-GDP)
     Route: 065
     Dates: start: 20170801, end: 20170901
  2. BENDAMUSTINE HYDROCHLORIDE [Suspect]
     Active Substance: BENDAMUSTINE HYDROCHLORIDE
     Indication: Diffuse large B-cell lymphoma
     Dosage: UNK (5TH LINE, P-BR)
     Route: 065
     Dates: start: 20201101, end: 20210101
  3. GEMCITABINE [Suspect]
     Active Substance: GEMCITABINE
     Indication: Diffuse large B-cell lymphoma
     Dosage: UNK (2ND LINE, R-GDP)
     Route: 065
     Dates: start: 20170801, end: 20170901
  4. POLATUZUMAB VEDOTIN [Suspect]
     Active Substance: POLATUZUMAB VEDOTIN
     Indication: Diffuse large B-cell lymphoma
     Dosage: UNK (5TH LINE, P-BR)
     Route: 065
     Dates: start: 20201101, end: 20210101
  5. CYCLOPHOSPHAMIDE\DOXORUBICIN\PREDNISONE\VINCRISTINE [Suspect]
     Active Substance: CYCLOPHOSPHAMIDE\DOXORUBICIN\PREDNISONE\VINCRISTINE
     Indication: Diffuse large B-cell lymphoma
     Dosage: UNK (1ST LINE, R-CHOP)
     Route: 065
     Dates: start: 20161001, end: 20170101
  6. CISPLATIN\CYTARABINE\DEXAMETHASONE [Suspect]
     Active Substance: CISPLATIN\CYTARABINE\DEXAMETHASONE
     Indication: Diffuse large B-cell lymphoma
     Dosage: UNK (R-DHAP AND ALLO-SCT)
     Route: 065
     Dates: start: 20210601, end: 20210730
  7. CARBOPLATIN\ETOPOSIDE\IFOSFAMIDE [Suspect]
     Active Substance: CARBOPLATIN\ETOPOSIDE\IFOSFAMIDE
     Indication: Diffuse large B-cell lymphoma
     Dosage: UNK (3RD LINE R-ICE)
     Route: 065
     Dates: start: 20170901, end: 20171101
  8. RITUXIMAB [Suspect]
     Active Substance: RITUXIMAB
     Dosage: UNK (4TH LINE, R-ICE)
     Route: 065
     Dates: start: 20200601, end: 20201001
  9. PREDNISONE [Suspect]
     Active Substance: PREDNISONE
     Indication: Diffuse large B-cell lymphoma
     Dosage: UNK (2ND LINE, R-GDP)
     Route: 065
     Dates: start: 20170801, end: 20170901
  10. RITUXIMAB [Suspect]
     Active Substance: RITUXIMAB
     Indication: Diffuse large B-cell lymphoma
     Dosage: UNK (1ST LINE, R-CHOP)
     Route: 065
     Dates: start: 20161001, end: 20170101
  11. RITUXIMAB [Suspect]
     Active Substance: RITUXIMAB
     Dosage: UNK (2ND LINE, R-GDP)
     Route: 065
     Dates: start: 20170801, end: 20170901
  12. RITUXIMAB [Suspect]
     Active Substance: RITUXIMAB
     Dosage: UNK (3RD LINE R-ICE)
     Route: 065
     Dates: start: 20170901, end: 20171101
  13. RITUXIMAB [Suspect]
     Active Substance: RITUXIMAB
     Dosage: UNK (4TH LINE, R-ICE)
     Route: 065
     Dates: start: 20200601, end: 20201001
  14. RITUXIMAB [Suspect]
     Active Substance: RITUXIMAB
     Dosage: UNK (5TH LINE, P-BR)
     Route: 065
     Dates: start: 20201101, end: 20210101
  15. RITUXIMAB [Suspect]
     Active Substance: RITUXIMAB
     Dosage: UNK (R-DHAP AND ALLO-SCT)
     Route: 065
     Dates: start: 20210601, end: 20210730

REACTIONS (4)
  - Lymphoma [Not Recovered/Not Resolved]
  - Osteolysis [Not Recovered/Not Resolved]
  - Resorption bone increased [Not Recovered/Not Resolved]
  - Ilium fracture [Not Recovered/Not Resolved]

NARRATIVE: CASE EVENT DATE: 20220101
